FAERS Safety Report 21386572 (Version 2)
Quarter: 2022Q4

REPORT INFORMATION
  Report Type: Spontaneous
  Country: US (occurrence: US)
  Receive Date: 20220928
  Receipt Date: 20221121
  Transmission Date: 20230113
  Serious: No
  Sender: FDA-Public Use
  Company Number: US-BAYER-2022A131353

PATIENT
  Age: 65 Year

DRUGS (1)
  1. ASTEPRO [Suspect]
     Active Substance: AZELASTINE HYDROCHLORIDE
     Dosage: ONE SPRAY IN EACH NOSTRIL
     Route: 045

REACTIONS (1)
  - Sneezing [Unknown]
